FAERS Safety Report 5041825-1 (Version None)
Quarter: 2006Q3

REPORT INFORMATION
  Report Type: 
  Country: None (occurrence: None)
  Receive Date: 20060704
  Receipt Date: 20060630
  Transmission Date: 20061208
  Serious: Yes (Death)
  Sender: FDA-Public Use
  Company Number: JP-SP-2006-01629

PATIENT
  Sex: Female

DRUGS (1)
  1. IMMUCYST [Suspect]
     Route: 043

REACTIONS (1)
  - SUBARACHNOID HAEMORRHAGE [None]
